FAERS Safety Report 12995785 (Version 1)
Quarter: 2016Q4

REPORT INFORMATION
  Report Type: Spontaneous
  Country: US (occurrence: US)
  Receive Date: 20161202
  Receipt Date: 20161202
  Transmission Date: 20170207
  Serious: No
  Sender: FDA-Public Use
  Company Number: US-SPECTRUM PHARMACEUTICALS, INC.-16-F-US-00036

PATIENT
  Sex: Male

DRUGS (1)
  1. FOLOTYN [Suspect]
     Active Substance: PRALATREXATE
     Indication: MYCOSIS FUNGOIDES
     Dosage: UNK

REACTIONS (2)
  - Off label use [Unknown]
  - Mucosal inflammation [Unknown]
